FAERS Safety Report 7550382-7 (Version None)
Quarter: 2011Q2

REPORT INFORMATION
  Report Type: 
  Country: None (occurrence: None)
  Receive Date: 20110615
  Receipt Date: 20110606
  Transmission Date: 20111010
  Serious: Yes (Hospitalization)
  Sender: FDA-Public Use
  Company Number: NO-ROCHE-759092

PATIENT
  Sex: Female
  Weight: 44 kg

DRUGS (13)
  1. KALSIUMKARBONAT [Concomitant]
  2. NITRAZEPAM [Concomitant]
     Dosage: DRUG: NITRAZEPHAM
     Dates: start: 19990101
  3. ESOMEPRAZOLE MAGNESIUM TRIHYDRATE [Concomitant]
     Dosage: DRUG REPORTED: ENSOMEPRAZOLMAGNESIUMTRIHYDRAT
  4. FERROGLYCINE SULFATE COMPLEX [Concomitant]
     Dosage: DRUG REPORTED: FERROGLYSINSULFATKOMPLEKSPENTAHYDRAT
  5. KALSIUMKARBONAT [Concomitant]
     Dates: start: 20020101
  6. TOCILIZUMAB [Suspect]
     Indication: RHEUMATOID ARTHRITIS
     Dosage: FREQUENCY REPORTED : Q4D, LAST DOSE PRIOR TO THE EVENT: 14 JAN 2010, FORM: INFUSION
     Route: 042
     Dates: start: 20090311, end: 20110114
  7. METHOTREXATE [Suspect]
     Indication: RHEUMATOID ARTHRITIS
     Dosage: FREQUENCY-QS, DATE OF LAST DOSE PRIOR TO EVENT: 02 FEB 2011
     Route: 048
     Dates: start: 20090311
  8. SIMVASTATIN [Concomitant]
     Dates: start: 20050101
  9. FOLIC ACID [Concomitant]
     Dates: start: 20050507
  10. CETIRIZINE DIHYDROCHLORIDE [Concomitant]
     Dates: start: 20060101
  11. SERETIDE [Concomitant]
  12. WARFARIN NATRIUM [Concomitant]
  13. CETIRIZINE DIHYDROCHLORIDE [Concomitant]

REACTIONS (1)
  - CHRONIC OBSTRUCTIVE PULMONARY DISEASE [None]
